FAERS Safety Report 4576514-0 (Version None)
Quarter: 2005Q1

REPORT INFORMATION
  Report Type: 
  Country: None (occurrence: None)
  Receive Date: 20050209
  Receipt Date: 20050202
  Transmission Date: 20050727
  Serious: Yes (Life-Threatening, Disabling)
  Sender: FDA-Public Use
  Company Number: US-MERCK-0502USA00293

PATIENT
  Age: 75 Year
  Sex: Male

DRUGS (3)
  1. HYZAAR [Suspect]
     Indication: HYPERTENSION
     Route: 048
     Dates: start: 20041115, end: 20050121
  2. SYNTHROID [Concomitant]
     Route: 065
  3. LOVASTATIN [Concomitant]
     Route: 048

REACTIONS (1)
  - THERMAL BURN [None]
